FAERS Safety Report 11813068 (Version 1)
Quarter: 2015Q4

REPORT INFORMATION
  Report Type: Spontaneous
  Country: US (occurrence: US)
  Receive Date: 20151209
  Receipt Date: 20151209
  Transmission Date: 20160305
  Serious: Yes (Other)
  Sender: FDA-Public Use
  Company Number: US-TEVA-616832ACC

PATIENT
  Sex: Female
  Weight: 67.65 kg

DRUGS (1)
  1. PARAGARD T 380A [Suspect]
     Active Substance: COPPER
     Indication: CONTRACEPTION
     Dates: start: 20151103, end: 20151124

REACTIONS (3)
  - Vaginal haemorrhage [Recovered/Resolved]
  - Muscle spasms [Recovered/Resolved]
  - Device dislocation [Recovered/Resolved]
